FAERS Safety Report 13536944 (Version 1)
Quarter: 2017Q2

REPORT INFORMATION
  Report Type: Spontaneous
  Country: US (occurrence: US)
  Receive Date: 20170511
  Receipt Date: 20170511
  Transmission Date: 20170830
  Serious: No
  Sender: FDA-Public Use
  Company Number: US-009507513-1705USA004067

PATIENT
  Age: 25 Year
  Sex: Female
  Weight: 73.02 kg

DRUGS (1)
  1. NEXPLANON [Suspect]
     Active Substance: ETONOGESTREL
     Indication: CONTRACEPTION
     Dosage: 1 DF, INSERTED IN THE LEFT ARM
     Route: 030
     Dates: start: 20150604

REACTIONS (4)
  - Device difficult to use [Unknown]
  - Migration of implanted drug [Unknown]
  - Complication associated with device [Unknown]
  - Device deployment issue [Unknown]

NARRATIVE: CASE EVENT DATE: 20150604
